FAERS Safety Report 5907910-4 (Version None)
Quarter: 2008Q4

REPORT INFORMATION
  Report Type: 
  Country: None (occurrence: None)
  Receive Date: 20081003
  Receipt Date: 20080923
  Transmission Date: 20090506
  Serious: Yes (Hospitalization, Other)
  Sender: FDA-Public Use
  Company Number: GB-ELI_LILLY_AND_COMPANY-GB200809005319

PATIENT
  Sex: Male

DRUGS (10)
  1. ZYPREXA [Suspect]
     Indication: ANXIETY
     Dosage: 5 MG, 2/D
     Dates: start: 19920101, end: 19960101
  2. FLUOXETINE [Concomitant]
  3. SALBUTAMOL [Concomitant]
  4. ALOPURINOL [Concomitant]
  5. ISODUR [Concomitant]
  6. VOLTAREN [Concomitant]
  7. FRUSEMIDE [Concomitant]
  8. GABAPENTIN [Concomitant]
  9. ASPIRIN [Concomitant]
  10. LIPITOR [Concomitant]

REACTIONS (1)
  - ATRIOVENTRICULAR BLOCK SECOND DEGREE [None]
